FAERS Safety Report 5713937-8 (Version None)
Quarter: 2008Q2

REPORT INFORMATION
  Report Type: 
  Country: None (occurrence: None)
  Receive Date: 20080422
  Receipt Date: 20080422
  Transmission Date: 20081010
  Serious: Yes (Hospitalization)
  Sender: FDA-Public Use
  Company Number: None

PATIENT
  Sex: Male
  Weight: 98 kg

DRUGS (2)
  1. CISPLATIN [Suspect]
     Indication: TONGUE NEOPLASM MALIGNANT STAGE UNSPECIFIED
     Dosage: 100MG/M2 IV Q3WKS
     Route: 042
     Dates: start: 20080324, end: 20080414
  2. CETUXIMAB [Suspect]
     Indication: TONGUE NEOPLASM MALIGNANT STAGE UNSPECIFIED
     Dosage: 250 MG/M2 IV QWK
     Route: 042
     Dates: start: 20080212, end: 20080421

REACTIONS (4)
  - ANOREXIA [None]
  - GASTROSTOMY TUBE INSERTION [None]
  - MUCOSAL INFLAMMATION [None]
  - WEIGHT DECREASED [None]
